FAERS Safety Report 6931524-0 (Version None)
Quarter: 2010Q3

REPORT INFORMATION
  Report Type: 
  Country: None (occurrence: None)
  Receive Date: 20100816
  Receipt Date: 20100809
  Transmission Date: 20110219
  Serious: Yes (Hospitalization, Disabling)
  Sender: FDA-Public Use
  Company Number: 10-298

PATIENT
  Age: 48 Year
  Sex: Male

DRUGS (4)
  1. ALEVE [Suspect]
     Indication: MUSCLE STRAIN
     Dosage: ORAL, 220 MG, ORAL
     Route: 048
     Dates: start: 20100501, end: 20100501
  2. ALEVE [Suspect]
     Indication: MYALGIA
     Dosage: ORAL, 220 MG, ORAL
     Route: 048
     Dates: start: 20100501, end: 20100501
  3. ALEVE [Suspect]
     Indication: MUSCLE STRAIN
     Dosage: ORAL, 220 MG, ORAL
     Route: 048
     Dates: start: 20100804
  4. ALEVE [Suspect]
     Indication: MYALGIA
     Dosage: ORAL, 220 MG, ORAL
     Route: 048
     Dates: start: 20100804

REACTIONS (12)
  - CHILLS [None]
  - ERYTHEMA [None]
  - FEELING HOT [None]
  - GALLBLADDER PAIN [None]
  - IMPAIRED WORK ABILITY [None]
  - NAUSEA [None]
  - PAIN [None]
  - PRESYNCOPE [None]
  - PRURITUS [None]
  - RASH MACULAR [None]
  - SNEEZING [None]
  - VOMITING [None]
